FAERS Safety Report 11922665 (Version 1)
Quarter: 2016Q1

REPORT INFORMATION
  Report Type: Spontaneous
  Country: US (occurrence: US)
  Receive Date: 20160115
  Receipt Date: 20160115
  Transmission Date: 20160526
  Serious: Yes (Hospitalization)
  Sender: FDA-Public Use
  Company Number: US-ALLERGAN-1600906US

PATIENT
  Age: 90 Year
  Sex: Female

DRUGS (2)
  1. MISTALINE [Concomitant]
     Indication: COLITIS
     Dosage: UNK
  2. VIBERZI [Suspect]
     Active Substance: ELUXADOLINE
     Indication: COLITIS MICROSCOPIC
     Dosage: 100 MG, BID
     Route: 048
     Dates: start: 20151219

REACTIONS (4)
  - Ileus [Unknown]
  - Intestinal obstruction [Unknown]
  - Off label use [Unknown]
  - Abdominal pain [Unknown]

NARRATIVE: CASE EVENT DATE: 20151219
